FAERS Safety Report 5649192-7 (Version None)
Quarter: 2008Q1

REPORT INFORMATION
  Report Type: 
  Country: None (occurrence: None)
  Receive Date: 20080131
  Receipt Date: 20071126
  Transmission Date: 20080703
  Serious: No
  Sender: FDA-Public Use
  Company Number: US200711006350

PATIENT
  Age: 78 Year
  Sex: Female

DRUGS (4)
  1. BYETTA [Suspect]
     Indication: TYPE 2 DIABETES MELLITUS
     Dosage: 5 , 10 UG, 2/D, SUBCUTANEOUS
     Route: 058
     Dates: start: 20050101, end: 20050101
  2. BYETTA [Suspect]
     Indication: TYPE 2 DIABETES MELLITUS
     Dosage: 5 , 10 UG, 2/D, SUBCUTANEOUS
     Route: 058
     Dates: end: 20050101
  3. EXENATIDE PEN DISPOSABLE DEVICE (EXENATIDE PEN) [Concomitant]
  4. AVANDIA [Concomitant]

REACTIONS (10)
  - ABDOMINAL PAIN UPPER [None]
  - CLUSTER HEADACHE [None]
  - CONSTIPATION [None]
  - COUGH [None]
  - DYSPEPSIA [None]
  - DYSPHAGIA [None]
  - DYSPHONIA [None]
  - ERUCTATION [None]
  - FLATULENCE [None]
  - ULCER [None]
